FAERS Safety Report 21284848 (Version 1)
Quarter: 2022Q3

REPORT INFORMATION
  Report Type: Spontaneous
  Country: US (occurrence: US)
  Receive Date: 20220902
  Receipt Date: 20220902
  Transmission Date: 20221027
  Serious: Yes (Hospitalization)
  Sender: FDA-Public Use
  Company Number: ENDG22-01815

PATIENT
  Sex: Male

DRUGS (5)
  1. PREDNISONE [Suspect]
     Active Substance: PREDNISONE
     Indication: Crohn^s disease
     Dosage: UNK UNKNOWN, UNKNOWN
     Route: 065
     Dates: start: 2016
  2. PREDNISONE [Suspect]
     Active Substance: PREDNISONE
     Indication: Colitis
     Dosage: 40 MG, UNKNOWN
     Route: 065
     Dates: start: 2021
  3. PREDNISONE [Suspect]
     Active Substance: PREDNISONE
     Indication: Hypersensitivity
     Dosage: 20 MG, UNKNOWN
     Route: 065
  4. REMICADE [Suspect]
     Active Substance: INFLIXIMAB
     Indication: Crohn^s disease
     Dosage: UNK UNKNOWN, INFUSION
     Route: 065
     Dates: start: 2016
  5. REMICADE [Suspect]
     Active Substance: INFLIXIMAB
     Indication: Colitis
     Dosage: UNK UNKNOWN, INFUSION
     Route: 065
     Dates: start: 2016

REACTIONS (1)
  - Peptic ulcer perforation [Unknown]

NARRATIVE: CASE EVENT DATE: 20160101
